FAERS Safety Report 5373019-4 (Version None)
Quarter: 2007Q2

REPORT INFORMATION
  Report Type: 
  Country: None (occurrence: None)
  Receive Date: 20070626
  Receipt Date: 20070614
  Transmission Date: 20071010
  Serious: Yes (Hospitalization, Congenital Anomaly)
  Sender: FDA-Public Use
  Company Number: 234859K07USA

PATIENT
  Age: 52 Year
  Sex: Male
  Weight: 106.5953 kg

DRUGS (2)
  1. REBIF [Suspect]
     Indication: MULTIPLE SCLEROSIS
     Dosage: 44 MCG, 3 IN 1 WEEKS, SUBCUTANEOUS
     Route: 058
     Dates: start: 20041216, end: 20060801
  2. ANTIDEPRESSANTS [Concomitant]

REACTIONS (1)
  - GLIOBLASTOMA MULTIFORME [None]
